FAERS Safety Report 25810879 (Version 1)
Quarter: 2025Q3

REPORT INFORMATION
  Report Type: Spontaneous
  Country: CN (occurrence: CN)
  Receive Date: 20250917
  Receipt Date: 20250917
  Transmission Date: 20251021
  Serious: Yes (Other)
  Sender: ALEXION PHARMACEUTICALS
  Company Number: CN-DSJP-DS-2025-164056-CN

PATIENT
  Age: 54 Year
  Sex: Female
  Weight: 72 kg

DRUGS (3)
  1. FULVESTRANT [Suspect]
     Active Substance: FULVESTRANT
     Indication: Neoplasm
     Dosage: 0.25 G, QD
     Dates: start: 20250815, end: 20250815
  2. FULVESTRANT [Suspect]
     Active Substance: FULVESTRANT
     Dosage: 0.25 G, QD
     Dates: start: 20250815, end: 20250815
  3. ENHERTU [Suspect]
     Active Substance: FAM-TRASTUZUMAB DERUXTECAN-NXKI
     Indication: Neoplasm
     Dosage: 200 MG, QD
     Dates: start: 20250817, end: 20250817

REACTIONS (1)
  - Drug-induced liver injury [Recovering/Resolving]

NARRATIVE: CASE EVENT DATE: 20250825
